FAERS Safety Report 5571633-4 (Version None)
Quarter: 2007Q4

REPORT INFORMATION
  Report Type: 
  Country: None (occurrence: None)
  Receive Date: 20071221
  Receipt Date: 20071023
  Transmission Date: 20080405
  Serious: Yes (Hospitalization)
  Sender: FDA-Public Use
  Company Number: US-BRISTOL-MYERS SQUIBB COMPANY-13953252

PATIENT
  Sex: Female

DRUGS (3)
  1. CARBOPLATIN [Suspect]
     Indication: OVARIAN CANCER METASTATIC
     Dates: start: 20070821
  2. PACLITAXEL [Suspect]
     Indication: OVARIAN CANCER METASTATIC
     Dates: start: 20070821
  3. DASATINIB [Suspect]
     Indication: OVARIAN CANCER METASTATIC
     Route: 048
     Dates: start: 20070822

REACTIONS (1)
  - ABDOMINAL PAIN UPPER [None]
